FAERS Safety Report 7673668-4 (Version None)
Quarter: 2011Q3

REPORT INFORMATION
  Report Type: 
  Country: None (occurrence: None)
  Receive Date: 20110810
  Receipt Date: 20110805
  Transmission Date: 20111222
  Serious: Yes (Hospitalization)
  Sender: FDA-Public Use
  Company Number: US-AMGEN-USASP2011039895

PATIENT
  Age: 98 Year
  Sex: Female

DRUGS (2)
  1. NEULASTA [Suspect]
     Indication: PRODUCT USED FOR UNKNOWN INDICATION
     Dates: start: 20110728
  2. ARANESP [Suspect]
     Indication: ANAEMIA
     Dates: start: 20100101

REACTIONS (3)
  - RECTAL HAEMORRHAGE [None]
  - BONE PAIN [None]
  - WRONG DRUG ADMINISTERED [None]
